FAERS Safety Report 17952107 (Version 1)
Quarter: 2020Q2

REPORT INFORMATION
  Report Type: Spontaneous
  Country: IT (occurrence: IT)
  Receive Date: 20200626
  Receipt Date: 20200626
  Transmission Date: 20200714
  Serious: Yes (Other)
  Sender: FDA-Public Use
  Company Number: IT-TOLMAR, INC.-20IT021764

PATIENT
  Age: 90 Year
  Sex: Male

DRUGS (5)
  1. SIMVASTATIN. [Concomitant]
     Active Substance: SIMVASTATIN
     Indication: PRODUCT USED FOR UNKNOWN INDICATION
     Dosage: UNK
     Route: 065
  2. LANSOPRAZOLE. [Concomitant]
     Active Substance: LANSOPRAZOLE
     Indication: PRODUCT USED FOR UNKNOWN INDICATION
     Dosage: UNK
     Route: 065
  3. ALLOPURINOL. [Concomitant]
     Active Substance: ALLOPURINOL
     Indication: PRODUCT USED FOR UNKNOWN INDICATION
     Dosage: UNK
     Route: 065
  4. SILODOSIN. [Concomitant]
     Active Substance: SILODOSIN
     Indication: PRODUCT USED FOR UNKNOWN INDICATION
     Dosage: UNK
     Route: 065
  5. ELIGARD [Suspect]
     Active Substance: LEUPROLIDE ACETATE
     Indication: PROSTATE CANCER
     Dosage: 3.75 MG, Q 1 MONTH
     Route: 065

REACTIONS (8)
  - Right ventricular dilatation [Recovered/Resolved]
  - Off label use [Not Recovered/Not Resolved]
  - Left ventricular hypertrophy [Recovered/Resolved]
  - Pulmonary hypertension [Recovered/Resolved]
  - Atrioventricular block complete [Recovered/Resolved]
  - Torsade de pointes [Recovered/Resolved]
  - Pulmonary oedema [Recovered/Resolved]
  - Electrocardiogram QT prolonged [Recovered/Resolved]
